FAERS Safety Report 9553812 (Version 1)
Quarter: 2013Q3

REPORT INFORMATION
  Report Type: Spontaneous
  Country: US (occurrence: None)
  Receive Date: 20130924
  Receipt Date: 20130924
  Transmission Date: 20140515
  Serious: Yes (Other)
  Sender: FDA-Public Use
  Company Number: None

PATIENT
  Age: 55 Year
  Sex: Female
  Weight: 99.79 kg

DRUGS (8)
  1. LEVOFLOXACIN [Suspect]
     Indication: PNEUMONIA
     Dosage: 1 PILL I BELIEVE, DONT REMEMBER, I BELIEVE IT WAS ONCE A DAY, BY MOUTH
  2. LEVOFLOXACIN [Suspect]
     Indication: ATYPICAL PNEUMONIA
     Dosage: 1 PILL I BELIEVE, DONT REMEMBER, I BELIEVE IT WAS ONCE A DAY, BY MOUTH
  3. LEVOTHYROXIN [Concomitant]
  4. LOSARTAN [Concomitant]
  5. PROBIOTIC [Concomitant]
  6. OMEGA3 [Concomitant]
  7. MULTI [Concomitant]
  8. CALCIUM [Concomitant]

REACTIONS (5)
  - Feeling abnormal [None]
  - Gait disturbance [None]
  - Diplopia [None]
  - Vitreous floaters [None]
  - Apparent death [None]
